FAERS Safety Report 8183726-6 (Version None)
Quarter: 2012Q1

REPORT INFORMATION
  Report Type: 
  Country: None (occurrence: None)
  Receive Date: 20120305
  Receipt Date: 20120126
  Transmission Date: 20120608
  Serious: Yes (Disabling)
  Sender: FDA-Public Use
  Company Number: GB-PFIZER INC-2009245376

PATIENT
  Age: 44 Year
  Sex: Male

DRUGS (5)
  1. EZETIMIBE [Suspect]
     Dosage: 10 MG, UNK
     Route: 048
  2. CRESTOR [Suspect]
     Indication: HYPERCHOLESTEROLAEMIA
     Dosage: 10 MG, UNK
     Route: 048
     Dates: start: 20060101
  3. ATENOLOL [Suspect]
     Dosage: 25 MG, UNK
     Route: 048
  4. RAMIPRIL [Suspect]
     Dosage: 10 MG, UNK
     Route: 048
     Dates: start: 20060101
  5. LANSOPRAZOLE [Suspect]
     Indication: GASTRIC PH DECREASED
     Dosage: 30 MG, UNK
     Route: 048
     Dates: start: 20060520

REACTIONS (1)
  - DEPRESSION [None]
